FAERS Safety Report 13623259 (Version 1)
Quarter: 2017Q2

REPORT INFORMATION
  Report Type: Report from Study
  Country: BE (occurrence: BE)
  Receive Date: 20170608
  Receipt Date: 20170608
  Transmission Date: 20170830
  Serious: Yes (Hospitalization)
  Sender: FDA-Public Use
  Company Number: BE-ROCHE-1941530

PATIENT
  Age: 52 Year
  Sex: Male

DRUGS (9)
  1. PROGRAFT [Concomitant]
     Active Substance: TACROLIMUS
     Indication: RENAL TRANSPLANT
     Route: 065
     Dates: start: 20140929
  2. ZANIDIP [Concomitant]
     Active Substance: LERCANIDIPINE HYDROCHLORIDE
     Route: 065
     Dates: start: 20141010, end: 20161110
  3. TRITACE [Concomitant]
     Active Substance: RAMIPRIL
     Route: 065
     Dates: start: 20141202
  4. PRIVIGEN [Concomitant]
     Active Substance: HUMAN IMMUNOGLOBULIN G
  5. PANTOMED (BELGIUM) [Concomitant]
     Route: 065
     Dates: start: 20141010, end: 20161110
  6. MEDROL [Concomitant]
     Active Substance: METHYLPREDNISOLONE
     Indication: RENAL TRANSPLANT
     Route: 065
     Dates: start: 20140929
  7. ROXONIN [Concomitant]
  8. MYCOPHENOLATE MOFETIL. [Suspect]
     Active Substance: MYCOPHENOLATE MOFETIL
     Indication: RENAL TRANSPLANT
     Route: 065
     Dates: start: 20140929
  9. SOLU-MEDROL [Concomitant]
     Active Substance: METHYLPREDNISOLONE SODIUM SUCCINATE

REACTIONS (1)
  - Kidney transplant rejection [Recovered/Resolved with Sequelae]

NARRATIVE: CASE EVENT DATE: 20161115
